FAERS Safety Report 8967181 (Version 3)
Quarter: 2013Q1

REPORT INFORMATION
  Report Type: Spontaneous
  Country: US (occurrence: US)
  Receive Date: 20121214
  Receipt Date: 20130208
  Transmission Date: 20140127
  Serious: Yes (Hospitalization)
  Sender: FDA-Public Use
  Company Number: US-BAXTER-2012BAX026372

PATIENT
  Age: 67 Year
  Sex: Male
  Weight: 107 kg

DRUGS (16)
  1. DIANEAL LOW CALCIUM [Suspect]
     Indication: PERITONEAL DIALYSIS
     Route: 033
     Dates: start: 20110526
  2. DIANEAL LOW CALCIUM (ULTRABAG) [Suspect]
     Indication: PERITONEAL DIALYSIS
     Route: 033
     Dates: start: 20110526
  3. ALDACTONE [Concomitant]
     Indication: BLOOD POTASSIUM DECREASED
     Route: 048
     Dates: start: 20110701
  4. ALLOPURINOL [Concomitant]
     Indication: PRODUCT USED FOR UNKNOWN INDICATION
     Route: 048
     Dates: start: 20110825
  5. AMIODARONE [Concomitant]
     Indication: ARRHYTHMIA
     Route: 048
     Dates: start: 20120125
  6. COLCRYS [Concomitant]
     Indication: GOUT
     Route: 048
     Dates: start: 20110701
  7. FLOMAX [Concomitant]
     Indication: BENIGN PROSTATIC HYPERPLASIA
     Route: 048
     Dates: start: 20110701
  8. FUROSEMIDE [Concomitant]
     Indication: PRODUCT USED FOR UNKNOWN INDICATION
     Dosage: 40 MG/ 2T
     Route: 048
     Dates: start: 20120503
  9. METOLAZONE [Concomitant]
     Indication: HYPERTENSION
     Route: 048
     Dates: start: 20110607
  10. METOLAZONE [Concomitant]
     Indication: DIURETIC THERAPY
     Route: 048
     Dates: start: 20121102
  11. MIDODRINE HCL [Concomitant]
     Indication: HYPOTENSION
     Route: 048
     Dates: start: 20121115
  12. NEPHROVITE [Concomitant]
     Indication: NUTRITIONAL SUPPLEMENTATION
     Dosage: 1
     Route: 048
     Dates: start: 20120125
  13. POTASSIUM CHLORIDE [Concomitant]
     Indication: HYPOKALAEMIA
     Route: 048
     Dates: start: 20121115
  14. ROCALTROL [Concomitant]
     Indication: PRODUCT USED FOR UNKNOWN INDICATION
     Route: 048
     Dates: start: 20121226
  15. VITAMIN B COMPLEX [Concomitant]
     Indication: VITAMIN SUPPLEMENTATION
     Route: 048
     Dates: start: 20110701
  16. WARFARIN [Concomitant]
     Indication: CORONARY ARTERY DISEASE
     Route: 048
     Dates: start: 20110607

REACTIONS (5)
  - Cardiac failure congestive [Recovering/Resolving]
  - Cardiac disorder [Recovering/Resolving]
  - Ultrafiltration failure [Recovering/Resolving]
  - Oedema peripheral [Unknown]
  - Fluid retention [Unknown]
